FAERS Safety Report 4777620-8 (Version None)
Quarter: 2005Q3

REPORT INFORMATION
  Report Type: 
  Country: None (occurrence: None)
  Receive Date: 20050923
  Receipt Date: 20050914
  Transmission Date: 20060218
  Serious: Yes (Life-Threatening)
  Sender: FDA-Public Use
  Company Number: GB-ABBOTT-05P-167-0311074-00

PATIENT
  Age: 21 Year
  Sex: Female

DRUGS (8)
  1. VALPROATE SODIUM [Suspect]
     Indication: EPILEPSY
     Route: 048
     Dates: start: 20030523
  2. GABAPENTIN [Suspect]
     Indication: EPILEPSY
     Route: 048
     Dates: start: 20030523
  3. HALOPERIDOL [Concomitant]
     Indication: DRUG USE FOR UNKNOWN INDICATION
     Route: 065
  4. LORAZEPAM [Concomitant]
     Indication: DRUG USE FOR UNKNOWN INDICATION
     Route: 065
  5. PYRIDOXINE HCL [Concomitant]
     Indication: PREMENSTRUAL SYNDROME
     Route: 048
     Dates: start: 20040907
  6. FLUOXETINE [Concomitant]
     Indication: DEPRESSION
     Route: 048
     Dates: start: 20041009
  7. OLANZAPINE [Concomitant]
     Indication: DRUG USE FOR UNKNOWN INDICATION
     Route: 048
     Dates: start: 20040604, end: 20050628
  8. WOOL FAT [Concomitant]
     Indication: SKIN INDURATION
     Route: 061
     Dates: start: 20030419

REACTIONS (1)
  - PULMONARY OEDEMA [None]
